FAERS Safety Report 4734325-7 (Version None)
Quarter: 2005Q3

REPORT INFORMATION
  Report Type: 
  Country: None (occurrence: None)
  Receive Date: 20050804
  Receipt Date: 20050721
  Transmission Date: 20060218
  Serious: No
  Sender: FDA-Public Use
  Company Number: CA-BOEHRINGER INGELHEIM PHARMACEUTICALS, INC.-2005-DE-02856GD

PATIENT
  Age: 1 Year
  Sex: Male

DRUGS (3)
  1. ASPIRIN [Suspect]
     Indication: KAWASAKI'S DISEASE
  2. DIPYRIDAMOLE [Suspect]
     Indication: KAWASAKI'S DISEASE
  3. WARFARIN [Suspect]
     Indication: KAWASAKI'S DISEASE
     Route: 048

REACTIONS (2)
  - IRRITABILITY [None]
  - MYOCARDIAL INFARCTION [None]
